FAERS Safety Report 9695709 (Version 3)
Quarter: 2013Q4

REPORT INFORMATION
  Report Type: Spontaneous
  Country: AU (occurrence: AU)
  Receive Date: 20131119
  Receipt Date: 20131231
  Transmission Date: 20140711
  Serious: Yes (Other)
  Sender: FDA-Public Use
  Company Number: AU-ASTRAZENECA-2013SE70612

PATIENT
  Age: 64 Year
  Sex: Female

DRUGS (5)
  1. SEROQUEL XR [Suspect]
     Indication: MAJOR DEPRESSION
     Route: 048
     Dates: start: 2011
  2. EFFEXOR XR [Suspect]
     Route: 065
  3. ARSENIC TRIOXIDE [Interacting]
     Route: 065
  4. WARFARIN [Suspect]
     Indication: PULMONARY EMBOLISM
     Route: 065
  5. CELEXA [Suspect]
     Route: 065

REACTIONS (4)
  - Drug interaction [Unknown]
  - Acute promyelocytic leukaemia [Recovering/Resolving]
  - Electrocardiogram QT prolonged [Unknown]
  - Neutropenia [Unknown]
